FAERS Safety Report 7035115-5 (Version None)
Quarter: 2010Q4

REPORT INFORMATION
  Report Type: 
  Country: None (occurrence: None)
  Receive Date: 20101008
  Receipt Date: 20100924
  Transmission Date: 20110411
  Serious: Yes (Other)
  Sender: FDA-Public Use
  Company Number: PHHY2010JP48955

PATIENT
  Sex: Female
  Weight: 38 kg

DRUGS (10)
  1. ZOMETA [Suspect]
     Indication: METASTASES TO BONE
     Dosage: 4 MG
     Route: 041
     Dates: start: 20100721, end: 20100721
  2. SERENACE [Concomitant]
     Indication: ANTIEMETIC SUPPORTIVE CARE
     Dosage: 5 MG
     Route: 041
     Dates: start: 20100717, end: 20100722
  3. CALONAL [Concomitant]
     Indication: ANALGESIC THERAPY
     Dosage: 1200 MG
     Route: 048
     Dates: start: 20100713
  4. CERCINE [Concomitant]
     Indication: ANTIEMETIC SUPPORTIVE CARE
     Dosage: 6 MG
     Route: 048
     Dates: start: 20100720, end: 20100722
  5. NAUZELIN [Concomitant]
     Indication: ANTIEMETIC SUPPORTIVE CARE
     Dosage: 30 MG
     Route: 048
     Dates: start: 20100720, end: 20100722
  6. NOVAMIN [Concomitant]
     Indication: ANTIEMETIC SUPPORTIVE CARE
     Dosage: 15 MG
     Route: 048
     Dates: start: 20100715
  7. MYSLEE [Concomitant]
     Indication: INSOMNIA
     Dosage: 10 MG
     Route: 048
     Dates: start: 20100713, end: 20100728
  8. MAGMITT [Concomitant]
     Dosage: 990 MG
     Route: 048
     Dates: start: 20100715
  9. MORPHINE HYDROCHLORIDE [Concomitant]
     Indication: ANALGESIC THERAPY
     Dosage: 20 MG
     Route: 041
     Dates: start: 20100716, end: 20100725
  10. GEMZAR [Concomitant]
     Indication: PANCREATIC CARCINOMA
     Dosage: 1200 MG
     Route: 041
     Dates: start: 20100720, end: 20100803

REACTIONS (6)
  - ALANINE AMINOTRANSFERASE INCREASED [None]
  - ASPARTATE AMINOTRANSFERASE INCREASED [None]
  - BLOOD LACTATE DEHYDROGENASE INCREASED [None]
  - C-REACTIVE PROTEIN INCREASED [None]
  - LIVER DISORDER [None]
  - PYREXIA [None]
